FAERS Safety Report 21566660 (Version 1)
Quarter: 2022Q4

REPORT INFORMATION
  Report Type: Spontaneous
  Country: PR (occurrence: None)
  Receive Date: 20221107
  Receipt Date: 20221107
  Transmission Date: 20230113
  Serious: Yes (Other)
  Sender: FDA-Public Use
  Company Number: None

PATIENT
  Age: 54 Year
  Sex: Male
  Weight: 77.4 kg

DRUGS (2)
  1. CABENUVA [Suspect]
     Active Substance: CABOTEGRAVIR\RILPIVIRINE
     Indication: Antiretroviral therapy
     Dosage: FREQUENCY : MONTHLY;?
     Route: 030
     Dates: start: 20220128, end: 20220929
  2. Protect Plus (vitamins) [Concomitant]

REACTIONS (1)
  - Skin mass [None]

NARRATIVE: CASE EVENT DATE: 20220924
